FAERS Safety Report 17016040 (Version 2)
Quarter: 2020Q1

REPORT INFORMATION
  Report Type: Spontaneous
  Country: CN (occurrence: CN)
  Receive Date: 20191111
  Receipt Date: 20200203
  Transmission Date: 20200409
  Serious: Yes (Death, Hospitalization, Other)
  Sender: FDA-Public Use
  Company Number: NVSC2019CN027494

PATIENT
  Age: 50 Year
  Sex: Female

DRUGS (15)
  1. DIAZEPAM. [Concomitant]
     Active Substance: DIAZEPAM
     Indication: EPILEPSY
     Dosage: 2 MG/H
     Route: 041
  2. ETANERCEPT [Suspect]
     Active Substance: ETANERCEPT
     Indication: PRODUCT USED FOR UNKNOWN INDICATION
     Dosage: 50 MG, UNK
     Route: 058
  3. METHYLPREDNISOLONE. [Suspect]
     Active Substance: METHYLPREDNISOLONE
     Dosage: 40 MG, QD
     Route: 065
  4. CEFTAZIDIME. [Concomitant]
     Active Substance: CEFTAZIDIME
     Indication: PROPHYLAXIS
     Dosage: UNK
     Route: 065
  5. METHYLPREDNISOLONE. [Suspect]
     Active Substance: METHYLPREDNISOLONE
     Indication: TOXIC EPIDERMAL NECROLYSIS
     Dosage: 80 MG, QD
     Route: 041
  6. METHYLPREDNISOLONE. [Suspect]
     Active Substance: METHYLPREDNISOLONE
     Dosage: 120 MG, UNK
     Route: 065
  7. NYSTATIN. [Concomitant]
     Active Substance: NYSTATIN
     Indication: PROPHYLAXIS
     Dosage: UNK
     Route: 065
  8. METHYLPREDNISOLONE. [Suspect]
     Active Substance: METHYLPREDNISOLONE
     Dosage: 120 MG, QD
     Route: 065
  9. BETAMETHASONE. [Suspect]
     Active Substance: BETAMETHASONE
     Indication: PROPHYLAXIS
     Dosage: 1 ML, UNK
     Route: 030
  10. LAMOTRIGINE. [Concomitant]
     Active Substance: LAMOTRIGINE
     Indication: EPILEPSY
     Dosage: UNK
     Route: 048
     Dates: start: 201611
  11. LEVETIRACETAM. [Concomitant]
     Active Substance: LEVETIRACETAM
     Indication: PRODUCT USED FOR UNKNOWN INDICATION
     Dosage: UNK
     Route: 048
  12. LINEZOLID. [Concomitant]
     Active Substance: LINEZOLID
     Indication: PROPHYLAXIS
     Dosage: UNK
     Route: 065
  13. METHYLPREDNISOLONE. [Suspect]
     Active Substance: METHYLPREDNISOLONE
     Dosage: UNK
     Route: 065
  14. METHYLPREDNISOLONE. [Suspect]
     Active Substance: METHYLPREDNISOLONE
     Dosage: 80 MG, QD
     Route: 065
  15. FLUCONAZOLE. [Concomitant]
     Active Substance: FLUCONAZOLE
     Indication: PROPHYLAXIS
     Dosage: UNK
     Route: 048

REACTIONS (4)
  - Metabolic acidosis [Unknown]
  - Respiratory failure [Unknown]
  - Aspergillus infection [Fatal]
  - Respiratory acidosis [Unknown]
